FAERS Safety Report 8852687 (Version 2)
Quarter: 2012Q4

REPORT INFORMATION
  Report Type: 
  Country: US (occurrence: US)
  Receive Date: 20121022
  Receipt Date: 20121126
  Transmission Date: 20130627
  Serious: No
  Sender: FDA-Public Use
  Company Number: US-VERTEX PHARMACEUTICAL INC.-2012-022904

PATIENT
  Age: 31 Year
  Sex: Male

DRUGS (4)
  1. KALYDECO [Suspect]
     Indication: CYSTIC FIBROSIS
     Dosage: 150 mg, bid
     Route: 048
     Dates: start: 201204, end: 201210
  2. KALYDECO [Suspect]
     Dosage: 150 mg, qd
     Route: 048
     Dates: start: 201210
  3. MIRALAX                            /00754501/ [Concomitant]
     Dosage: UNK
     Dates: start: 201203
  4. VITAMIN D /00107901/ [Concomitant]

REACTIONS (1)
  - Transaminases increased [Recovered/Resolved]
